FAERS Safety Report 12398579 (Version 1)
Quarter: 2016Q2

REPORT INFORMATION
  Report Type: Spontaneous
  Country: US (occurrence: US)
  Receive Date: 20160524
  Receipt Date: 20160524
  Transmission Date: 20160815
  Serious: No
  Sender: FDA-Public Use
  Company Number: US-SAGENTPRD-2016-US-000012

PATIENT
  Age: 77 Year
  Sex: Female
  Weight: 66.23 kg

DRUGS (1)
  1. ZOLEDRONIC ACID. [Suspect]
     Active Substance: ZOLEDRONIC ACID
     Dosage: 5 MG/100 ML IV ONE TIME
     Route: 042
     Dates: start: 20160315, end: 20160315

REACTIONS (2)
  - Chills [Recovered/Resolved with Sequelae]
  - Hypertension [Recovered/Resolved with Sequelae]

NARRATIVE: CASE EVENT DATE: 20160315
